FAERS Safety Report 7935745-X (Version None)
Quarter: 2011Q4

REPORT INFORMATION
  Report Type: 
  Country: None (occurrence: None)
  Receive Date: 20111123
  Receipt Date: 20111121
  Transmission Date: 20120403
  Serious: Yes (Other)
  Sender: FDA-Public Use
  Company Number: PHEH2011US009981

PATIENT
  Sex: Female

DRUGS (1)
  1. TOBI [Suspect]
     Indication: LUNG TRANSPLANT
     Dosage: 60 MG, BID
     Dates: start: 20110516

REACTIONS (2)
  - HIP FRACTURE [None]
  - FALL [None]
